FAERS Safety Report 14583689 (Version 1)
Quarter: 2018Q1

REPORT INFORMATION
  Report Type: Spontaneous
  Country: US (occurrence: US)
  Receive Date: 20180227
  Receipt Date: 20180227
  Transmission Date: 20180509
  Serious: Yes (Other)
  Sender: FDA-Public Use
  Company Number: None

PATIENT
  Age: 51 Year
  Sex: Female
  Weight: 103.5 kg

DRUGS (9)
  1. VENLAFAXINE XR CAPSULES [Suspect]
     Active Substance: VENLAFAXINE HYDROCHLORIDE
     Indication: MAJOR DEPRESSION
     Dosage: ?          QUANTITY:90 CAPSULE(S);?
     Route: 048
     Dates: start: 20171215, end: 20180226
  2. ATIVAN [Concomitant]
     Active Substance: LORAZEPAM
  3. METROPOLOL [Concomitant]
     Active Substance: METOPROLOL
  4. VITAMIN D3 [Concomitant]
     Active Substance: CHOLECALCIFEROL
  5. LAMOTRIGINE. [Concomitant]
     Active Substance: LAMOTRIGINE
  6. LISINOPRIL. [Concomitant]
     Active Substance: LISINOPRIL
  7. VENLAFAXINE XR CAPSULES [Suspect]
     Active Substance: VENLAFAXINE HYDROCHLORIDE
     Indication: ANXIETY
     Dosage: ?          QUANTITY:90 CAPSULE(S);?
     Route: 048
     Dates: start: 20171215, end: 20180226
  8. METFORMIN [Concomitant]
     Active Substance: METFORMIN HYDROCHLORIDE
  9. OMEPRAZOLE. [Concomitant]
     Active Substance: OMEPRAZOLE

REACTIONS (9)
  - Frustration tolerance decreased [None]
  - Product substitution issue [None]
  - Depression [None]
  - Nausea [None]
  - Medication residue present [None]
  - Withdrawal syndrome [None]
  - Diarrhoea [None]
  - Anxiety [None]
  - Product coating issue [None]

NARRATIVE: CASE EVENT DATE: 20171215
